FAERS Safety Report 7684859-0 (Version None)
Quarter: 2011Q3

REPORT INFORMATION
  Report Type: 
  Country: None (occurrence: None)
  Receive Date: 20110816
  Receipt Date: 20110808
  Transmission Date: 20111222
  Serious: Yes (Other)
  Sender: FDA-Public Use
  Company Number: US-SP-2011-06617

PATIENT
  Sex: Female

DRUGS (2)
  1. IMMUNOGLOBULIN HUMAN ANTIRABIES [Suspect]
     Indication: PRODUCT USED FOR UNKNOWN INDICATION
     Route: 065
     Dates: start: 20110726, end: 20110802
  2. RABIES VACCINE [Suspect]
     Indication: IMMUNISATION
     Route: 065
     Dates: start: 20110726, end: 20110804

REACTIONS (7)
  - CHEST PAIN [None]
  - LYMPHADENOPATHY [None]
  - NAUSEA [None]
  - FATIGUE [None]
  - BREAST PAIN [None]
  - HEADACHE [None]
  - OVERDOSE [None]
